FAERS Safety Report 24946862 (Version 1)
Quarter: 2025Q1

REPORT INFORMATION
  Report Type: Spontaneous
  Country: US (occurrence: US)
  Receive Date: 20250210
  Receipt Date: 20250210
  Transmission Date: 20250408
  Serious: Yes (Congenital Anomaly, Other)
  Sender: APOTEX
  Company Number: US-APOTEX-2025AP001904

PATIENT

DRUGS (1)
  1. FINGOLIMOD [Suspect]
     Active Substance: FINGOLIMOD
     Indication: Product used for unknown indication
     Route: 064

REACTIONS (2)
  - Ventricular septal defect [Recovered/Resolved]
  - Maternal exposure during pregnancy [Unknown]
